FAERS Safety Report 25204807 (Version 1)
Quarter: 2025Q2

REPORT INFORMATION
  Report Type: Spontaneous
  Country: JP (occurrence: JP)
  Receive Date: 20250416
  Receipt Date: 20250416
  Transmission Date: 20250717
  Serious: Yes (Hospitalization)
  Sender: EISAI
  Company Number: JP-Eisai-202404137_HAL-STS_P_1

PATIENT
  Sex: Female

DRUGS (1)
  1. HALAVEN [Suspect]
     Active Substance: ERIBULIN MESYLATE
     Indication: Neoplasm malignant
     Route: 041

REACTIONS (3)
  - Pleural effusion [Unknown]
  - Nausea [Recovering/Resolving]
  - Malaise [Recovering/Resolving]
